FAERS Safety Report 5374342-X (Version None)
Quarter: 2007Q2

REPORT INFORMATION
  Report Type: 
  Country: None (occurrence: None)
  Receive Date: 20070629
  Receipt Date: 20070621
  Transmission Date: 20071010
  Serious: Yes (Hospitalization)
  Sender: FDA-Public Use
  Company Number: PHEH2007US04928

PATIENT
  Age: 74 Year
  Sex: Female

DRUGS (6)
  1. ZELNORM [Suspect]
     Indication: CONSTIPATION
     Dosage: 6 MG, BID
     Route: 048
     Dates: start: 20070201, end: 20070403
  2. ALDOMET [Concomitant]
     Indication: HYPERTENSION
  3. DYAZIDE [Concomitant]
     Indication: HYPERTENSION
  4. THYROID TAB [Concomitant]
  5. ACLOVATE [Concomitant]
     Indication: BLOOD TESTOSTERONE DECREASED
  6. ALBUTEROL [Concomitant]
     Indication: ASTHMA

REACTIONS (2)
  - DIZZINESS [None]
  - HYPERTENSION [None]
